FAERS Safety Report 10753165 (Version 4)
Quarter: 2015Q1

REPORT INFORMATION
  Report Type: Spontaneous
  Country: US (occurrence: US)
  Receive Date: 20150130
  Receipt Date: 20150302
  Transmission Date: 20150721
  Serious: Yes (Death, Life-Threatening, Hospitalization, Other)
  Sender: FDA-Public Use
  Company Number: US-ACTELION-A-US2015-111713

PATIENT
  Age: 62 Year
  Sex: Male

DRUGS (10)
  1. BENICAR [Concomitant]
     Active Substance: OLMESARTAN MEDOXOMIL
  2. OPSUMIT [Suspect]
     Active Substance: MACITENTAN
     Indication: PULMONARY ARTERIAL HYPERTENSION
     Dosage: 10 MG, UNK
     Route: 048
  3. REVATIO [Suspect]
     Active Substance: SILDENAFIL CITRATE
     Indication: PULMONARY ARTERIAL HYPERTENSION
     Dosage: 50 MG, TID
     Route: 065
     Dates: start: 201501, end: 201501
  4. BUMEX [Concomitant]
     Active Substance: BUMETANIDE
  5. DILTIAZEM [Concomitant]
     Active Substance: DILTIAZEM
     Dosage: 200 UNK, QD
     Dates: start: 201501, end: 201501
  6. AMIODARONE [Concomitant]
     Active Substance: AMIODARONE
     Dosage: 400 UNK, BID
     Dates: start: 201501, end: 201501
  7. METAXALONE. [Concomitant]
     Active Substance: METAXALONE
     Dosage: 800 UNK, TID
     Dates: start: 201501, end: 201501
  8. ALDACTONE [Concomitant]
     Active Substance: SPIRONOLACTONE
  9. LIPITOR [Concomitant]
     Active Substance: ATORVASTATIN CALCIUM
  10. REMODULIN [Suspect]
     Active Substance: TREPROSTINIL
     Indication: PULMONARY ARTERIAL HYPERTENSION
     Dosage: UNK
     Route: 042
     Dates: start: 201501, end: 201501

REACTIONS (5)
  - Death [Fatal]
  - Dyspnoea exertional [Unknown]
  - Right ventricular failure [Unknown]
  - Dyspnoea [Not Recovered/Not Resolved]
  - Condition aggravated [Unknown]

NARRATIVE: CASE EVENT DATE: 20150108
